FAERS Safety Report 7631729-X (Version None)
Quarter: 2011Q3

REPORT INFORMATION
  Report Type: 
  Country: None (occurrence: None)
  Receive Date: 20110725
  Receipt Date: 20110328
  Transmission Date: 20111222
  Serious: No
  Sender: FDA-Public Use
  Company Number: US-BRISTOL-MYERS SQUIBB COMPANY-15563190

PATIENT
  Age: 68 Year
  Sex: Female

DRUGS (7)
  1. LUMIGAN [Concomitant]
  2. FERROUS SULFATE TAB [Concomitant]
     Dosage: IRON PILLS
  3. OMEPRAZOLE [Concomitant]
  4. BETAXOLOL [Concomitant]
     Dosage: BETAXOLOL FALCON
  5. WARFARIN SODIUM [Suspect]
     Dates: start: 20100901
  6. SIMVASTATIN [Concomitant]
  7. ALENDRONATE SODIUM [Concomitant]

REACTIONS (3)
  - LIMB INJURY [None]
  - INTERNATIONAL NORMALISED RATIO FLUCTUATION [None]
  - SKIN DISCOLOURATION [None]
